FAERS Safety Report 9554131 (Version 1)
Quarter: 2013Q3

REPORT INFORMATION
  Report Type: Report from Study
  Country: CO (occurrence: CO)
  Receive Date: 20130925
  Receipt Date: 20130925
  Transmission Date: 20140515
  Serious: Yes (Hospitalization)
  Sender: FDA-Public Use
  Company Number: CO-BRISTOL-MYERS SQUIBB COMPANY-19384197

PATIENT
  Age: 46 Year
  Sex: Female

DRUGS (2)
  1. IXABEPILONE [Suspect]
     Indication: BREAST CANCER
     Dosage: LAST CYCLE : 22AUG2013
     Dates: start: 20130704
  2. BEVACIZUMAB [Concomitant]

REACTIONS (1)
  - Pleural effusion [Recovered/Resolved]
